FAERS Safety Report 6368102-0 (Version None)
Quarter: 2009Q3

REPORT INFORMATION
  Report Type: 
  Country: None (occurrence: None)
  Receive Date: 20090922
  Receipt Date: 20090908
  Transmission Date: 20100115
  Serious: No
  Sender: FDA-Public Use
  Company Number: PHHY2009CA28149

PATIENT
  Sex: Female

DRUGS (6)
  1. ACLASTA [Suspect]
     Indication: OSTEOPOROSIS
     Dosage: 5 MG, UNK
     Dates: start: 20080702, end: 20080702
  2. VENTOLIN [Concomitant]
     Indication: ASTHMA
     Dosage: PRN
     Route: 048
     Dates: start: 20040101
  3. SYMBICORT [Concomitant]
     Indication: ASTHMA
     Dosage: BID
     Dates: start: 20050101
  4. MAVIK [Concomitant]
     Indication: HYPERTENSION
     Dosage: 200 MG, QD
     Route: 048
     Dates: start: 20070101
  5. LIPITOR [Concomitant]
     Indication: HYPERLIPIDAEMIA
     Dosage: 20 MG, Q96H
     Route: 048
     Dates: start: 20060101
  6. METFORMIN HCL [Concomitant]
     Indication: DIABETES MELLITUS
     Dosage: 250 MG, QD
     Route: 048
     Dates: start: 20030101

REACTIONS (7)
  - BLOOD CALCIUM DECREASED [None]
  - CHILLS [None]
  - FATIGUE [None]
  - GENERALISED ERYTHEMA [None]
  - NAUSEA [None]
  - PAIN [None]
  - PYREXIA [None]
